FAERS Safety Report 4779934-4 (Version None)
Quarter: 2005Q3

REPORT INFORMATION
  Report Type: 
  Country: None (occurrence: None)
  Receive Date: 20050927
  Receipt Date: 20050825
  Transmission Date: 20060218
  Serious: Yes (Hospitalization, Disabling)
  Sender: FDA-Public Use
  Company Number: US-GLAXOSMITHKLINE-A0571883A

PATIENT
  Age: 77 Year
  Sex: Male
  Weight: 76.4 kg

DRUGS (3)
  1. AVODART [Suspect]
     Indication: BENIGN PROSTATIC HYPERPLASIA
     Dosage: .5MG UNKNOWN
     Route: 048
     Dates: start: 20050101, end: 20050101
  2. SODIUM BICARBONATE [Concomitant]
     Dosage: 650MG TWICE PER DAY
     Dates: start: 20050101
  3. ZANTAC [Concomitant]
     Indication: GASTRITIS
     Dosage: 150MG TWICE PER DAY

REACTIONS (4)
  - HICCUPS [None]
  - HYPOTENSION [None]
  - NAUSEA [None]
  - VOMITING [None]
